FAERS Safety Report 16088109 (Version 1)
Quarter: 2019Q1

REPORT INFORMATION
  Report Type: Report from Study
  Country: DE (occurrence: DE)
  Receive Date: 20190319
  Receipt Date: 20190319
  Transmission Date: 20190418
  Serious: Yes (Other)
  Sender: FDA-Public Use
  Company Number: DE-ROCHE-2028820

PATIENT
  Age: 56 Year
  Sex: Female
  Weight: 55 kg

DRUGS (23)
  1. FOLINIC ACID [Concomitant]
     Active Substance: LEUCOVORIN
     Route: 042
     Dates: start: 20140325, end: 20150425
  2. OXALIPLATIN. [Concomitant]
     Active Substance: OXALIPLATIN
     Indication: COLORECTAL CANCER
     Route: 042
     Dates: start: 20140311, end: 20140311
  3. BEVACIZUMAB. [Suspect]
     Active Substance: BEVACIZUMAB
     Route: 042
     Dates: start: 20141128
  4. 5-FLUOROURACIL [Concomitant]
     Active Substance: FLUOROURACIL
     Route: 040
     Dates: start: 20140423, end: 20140814
  5. HYDROCHLOROTHIAZIDE/TRIAMTERENE [Concomitant]
     Active Substance: HYDROCHLOROTHIAZIDE\TRIAMTERENE
     Indication: HYPERTENSION
     Route: 065
     Dates: start: 20140116
  6. FOLINIC ACID [Concomitant]
     Active Substance: LEUCOVORIN
     Route: 042
     Dates: start: 20140507, end: 20140814
  7. OXALIPLATIN. [Concomitant]
     Active Substance: OXALIPLATIN
     Route: 042
     Dates: start: 20150408, end: 20150408
  8. OXALIPLATIN. [Concomitant]
     Active Substance: OXALIPLATIN
     Route: 042
     Dates: start: 20140507, end: 20140521
  9. AMLODIPIN [Concomitant]
     Active Substance: AMLODIPINE BESYLATE
     Indication: HYPERTENSION
     Route: 065
     Dates: start: 20140116
  10. OXALIPLATIN. [Concomitant]
     Active Substance: OXALIPLATIN
     Route: 042
     Dates: start: 20140423, end: 20140423
  11. ENALAPRIL MALEATE. [Concomitant]
     Active Substance: ENALAPRIL MALEATE
     Indication: HYPERTENSION
     Route: 065
     Dates: start: 20140116
  12. XELODA [Suspect]
     Active Substance: CAPECITABINE
     Indication: COLORECTAL CANCER
     Dosage: DAILY DOSE: 3000 MG MILLGRAM(S) EVERY DAYS
     Route: 048
     Dates: start: 20140909, end: 20141211
  13. BEVACIZUMAB. [Suspect]
     Active Substance: BEVACIZUMAB
     Indication: COLORECTAL CANCER METASTATIC
     Route: 042
     Dates: start: 20140311
  14. 5-FLUOROURACIL [Concomitant]
     Active Substance: FLUOROURACIL
     Route: 040
     Dates: start: 20140408, end: 20140408
  15. FOLINIC ACID [Concomitant]
     Active Substance: LEUCOVORIN
     Indication: COLORECTAL CANCER
     Route: 042
     Dates: start: 20140311
  16. OXALIPLATIN. [Concomitant]
     Active Substance: OXALIPLATIN
     Route: 042
     Dates: start: 20140116, end: 20140813
  17. 5-FLUOROURACIL [Concomitant]
     Active Substance: FLUOROURACIL
     Indication: COLORECTAL CANCER
     Route: 040
     Dates: start: 20140311
  18. 5-FLUOROURACIL [Concomitant]
     Active Substance: FLUOROURACIL
     Route: 041
     Dates: start: 20140311, end: 20140814
  19. METOPROLOLTARTRAT [Concomitant]
     Indication: HYPERTENSION
     Route: 065
     Dates: start: 20140116
  20. 5-FLUOROURACIL [Concomitant]
     Active Substance: FLUOROURACIL
     Route: 040
     Dates: start: 20140325, end: 20140325
  21. OXALIPLATIN. [Concomitant]
     Active Substance: OXALIPLATIN
     Route: 042
     Dates: start: 20140325, end: 20140325
  22. OXALIPLATIN. [Concomitant]
     Active Substance: OXALIPLATIN
     Route: 042
     Dates: start: 20140604, end: 20140604
  23. OXALIPLATIN. [Concomitant]
     Active Substance: OXALIPLATIN
     Route: 042
     Dates: start: 20140618, end: 20140702

REACTIONS (2)
  - Iron deficiency anaemia [Unknown]
  - Stoma site haemorrhage [Recovered/Resolved]

NARRATIVE: CASE EVENT DATE: 20141111
